FAERS Safety Report 7947299-2 (Version None)
Quarter: 2011Q4

REPORT INFORMATION
  Report Type: 
  Country: None (occurrence: None)
  Receive Date: 20111130
  Receipt Date: 20111122
  Transmission Date: 20120403
  Serious: Yes (Hospitalization, Other)
  Sender: FDA-Public Use
  Company Number: US-BIOGENIDEC-2010BI038624

PATIENT
  Age: 64 Year
  Sex: Female

DRUGS (4)
  1. TYSABRI [Suspect]
     Indication: MULTIPLE SCLEROSIS
     Route: 042
     Dates: start: 20090728, end: 20100922
  2. TYSABRI [Suspect]
     Route: 042
     Dates: start: 20110921
  3. PHENOBARBITAL TAB [Concomitant]
     Dates: start: 19800101
  4. LEVITRON (PRESUMED LEVETIRACETAM) [Concomitant]
     Dates: start: 19800101

REACTIONS (5)
  - ARTHRALGIA [None]
  - DEVICE DISLOCATION [None]
  - OSTEONECROSIS [None]
  - CONSTIPATION [None]
  - CONVULSION [None]
